FAERS Safety Report 21869409 (Version 1)
Quarter: 2023Q1

REPORT INFORMATION
  Report Type: Spontaneous
  Country: US (occurrence: US)
  Receive Date: 20230117
  Receipt Date: 20230117
  Transmission Date: 20230418
  Serious: Yes (Death, Life-Threatening, Hospitalization)
  Sender: FDA-Public Use
  Company Number: US-STRIDES ARCOLAB LIMITED-2023SP000453

PATIENT
  Age: 58 Year
  Sex: Female

DRUGS (7)
  1. DEXAMETHASONE [Suspect]
     Active Substance: DEXAMETHASONE
     Indication: COVID-19 pneumonia
     Dosage: 6 MILLIGRAM/DAY
     Route: 065
  2. DEXAMETHASONE [Suspect]
     Active Substance: DEXAMETHASONE
     Indication: Respiratory failure
     Dosage: UNK
     Route: 065
  3. DEXAMETHASONE [Suspect]
     Active Substance: DEXAMETHASONE
     Indication: Haemophagocytic lymphohistiocytosis
  4. TOFACITINIB [Suspect]
     Active Substance: TOFACITINIB
     Indication: COVID-19 pneumonia
     Dosage: 10 MILLIGRAM, BID
     Route: 065
  5. TOFACITINIB [Suspect]
     Active Substance: TOFACITINIB
     Indication: Respiratory failure
  6. REMDESIVIR [Concomitant]
     Active Substance: REMDESIVIR
     Indication: Respiratory failure
     Dosage: 200 MILLIGRAM,ON DAY 1
     Route: 065
  7. REMDESIVIR [Concomitant]
     Active Substance: REMDESIVIR
     Indication: COVID-19 pneumonia
     Dosage: 100 MILLIGRAM
     Route: 065

REACTIONS (17)
  - Septic shock [Fatal]
  - Enterococcal infection [Fatal]
  - Enterococcal bacteraemia [Fatal]
  - Pneumonia viral [Fatal]
  - Herpes simplex [Fatal]
  - Acute kidney injury [Fatal]
  - Haemophagocytic lymphohistiocytosis [Fatal]
  - Coagulopathy [Fatal]
  - Metabolic acidosis [Fatal]
  - Haematoma [Fatal]
  - Brain stem syndrome [Fatal]
  - Areflexia [Fatal]
  - Subarachnoid haemorrhage [Fatal]
  - Liver injury [Unknown]
  - Respiratory distress [Unknown]
  - Encephalopathy [Unknown]
  - Off label use [Unknown]
